FAERS Safety Report 5213341-5 (Version None)
Quarter: 2007Q1

REPORT INFORMATION
  Report Type: 
  Country: None (occurrence: None)
  Receive Date: 20070119
  Receipt Date: 20060613
  Transmission Date: 20070707
  Serious: Yes (Other)
  Sender: FDA-Public Use
  Company Number: A01200603990

PATIENT
  Age: 73 Year
  Sex: Female
  Weight: 60 kg

DRUGS (24)
  1. ARIXTRA [Suspect]
     Dosage: 2.5MG SINGLE DOSE
     Route: 058
     Dates: start: 20060316, end: 20060316
  2. ACETAMINOPHEN [Concomitant]
     Dosage: 650MG AS REQUIRED
     Route: 048
     Dates: start: 20060315, end: 20060320
  3. ALPRAZOLAM [Concomitant]
     Dosage: .5MG AS REQUIRED
     Route: 048
     Dates: start: 20060315, end: 20060320
  4. ASPIRIN [Concomitant]
     Dosage: 325MG PER DAY
     Route: 048
     Dates: start: 20060315, end: 20060320
  5. CALCIUM + D. VITAMIN [Concomitant]
     Dosage: 1TAB PER DAY
     Route: 048
     Dates: start: 20060315, end: 20060320
  6. CEFAZOLIN [Concomitant]
     Dosage: 2G THREE TIMES PER DAY
     Route: 042
     Dates: start: 20060315, end: 20060320
  7. EZETIMIBE [Concomitant]
     Dosage: 10MG UNKNOWN
     Route: 048
     Dates: start: 20060315, end: 20060320
  8. FERROUS SULFATE TAB [Concomitant]
     Dosage: 325MG TWICE PER DAY
     Route: 048
     Dates: start: 20060315, end: 20060320
  9. FRUSEMIDE [Concomitant]
     Dosage: 20MG UNKNOWN
     Route: 042
     Dates: start: 20060315, end: 20060320
  10. KETOROLAC TROMETHAMINE [Concomitant]
     Dosage: 50MG FOUR TIMES PER DAY
     Route: 042
     Dates: start: 20060315, end: 20060320
  11. MULTI-VITAMIN [Concomitant]
     Dosage: 1TAB PER DAY
     Route: 048
     Dates: start: 20060315, end: 20060320
  12. MAGNESIUM SULFATE [Concomitant]
     Dosage: 2G SINGLE DOSE
     Route: 042
     Dates: start: 20060316, end: 20060316
  13. METOPROLOL SUCCINATE EXTENDED RELEASE [Concomitant]
     Dosage: 20MG PER DAY
     Route: 048
     Dates: start: 20060315, end: 20060320
  14. MORPHINE [Concomitant]
     Dosage: 2MG AS REQUIRED
     Route: 050
     Dates: start: 20060316, end: 20060317
  15. NITROGLYCERIN [Concomitant]
     Dosage: 1IN FOUR TIMES PER DAY
     Route: 061
     Dates: start: 20060316, end: 20060320
  16. ONDANSETRON [Concomitant]
     Dosage: 4MG AS REQUIRED
     Route: 042
     Dates: start: 20060316, end: 20060320
  17. PANTOPRAZOLE SODIUM [Concomitant]
     Dosage: 40MG PER DAY
     Route: 048
     Dates: start: 20060315, end: 20060320
  18. POTASSIUM CHLORIDE [Concomitant]
     Dosage: 40MEQ SINGLE DOSE
     Route: 048
     Dates: start: 20060316, end: 20060316
  19. POTASSIUM CHLORIDE [Concomitant]
     Dosage: 40MEQ SINGLE DOSE
     Route: 048
     Dates: start: 20060316, end: 20060316
  20. BETADINE [Concomitant]
     Dosage: 1APP FOUR TIMES PER DAY
     Route: 061
     Dates: start: 20060315, end: 20060320
  21. PROCHLORPERAZINE [Concomitant]
     Route: 042
     Dates: start: 20060316, end: 20060320
  22. DARVOCET-N 100 [Concomitant]
     Route: 048
     Dates: start: 20060315, end: 20060318
  23. SENOKOT [Concomitant]
     Dosage: 1TAB TWICE PER DAY
     Route: 048
     Dates: start: 20060315, end: 20060320
  24. TEMAZEPAM [Concomitant]
     Dosage: 15MG AS REQUIRED
     Route: 048
     Dates: start: 20060315, end: 20060320

REACTIONS (2)
  - PLATELET COUNT DECREASED [None]
  - THROMBOCYTOPENIA [None]
